FAERS Safety Report 23332319 (Version 1)
Quarter: 2023Q4

REPORT INFORMATION
  Report Type: Spontaneous
  Country: BE (occurrence: BE)
  Receive Date: 20231222
  Receipt Date: 20231222
  Transmission Date: 20240110
  Serious: Yes (Life-Threatening)
  Sender: FDA-Public Use
  Company Number: BE-NOVOPROD-1152464

PATIENT
  Age: 45 Year
  Sex: Female

DRUGS (1)
  1. OZEMPIC [Suspect]
     Active Substance: SEMAGLUTIDE
     Indication: Weight decreased
     Dosage: UNK

REACTIONS (6)
  - Diabetic coma [Unknown]
  - Seizure [Unknown]
  - Device malfunction [Unknown]
  - Drug delivery system issue [Unknown]
  - Suspected counterfeit product [Unknown]
  - Off label use [Unknown]
